FAERS Safety Report 13356478 (Version 1)
Quarter: 2017Q1

REPORT INFORMATION
  Report Type: Spontaneous
  Country: BR (occurrence: BR)
  Receive Date: 20170321
  Receipt Date: 20170321
  Transmission Date: 20170429
  Serious: Yes (Disabling, Other)
  Sender: FDA-Public Use
  Company Number: BR-ABBVIE-17P-020-1908485-00

PATIENT
  Sex: Male
  Weight: 56 kg

DRUGS (6)
  1. DEPAKENE [Suspect]
     Active Substance: VALPROIC ACID
     Indication: SCHIZOPHRENIA
     Dosage: DAILY DOSE: 1500MG (500MG AT MORNING, LUNCH, NIGHT)
     Route: 048
     Dates: start: 2012
  2. VITAMINS NOS [Concomitant]
     Active Substance: VITAMINS
     Indication: VITAMIN SUPPLEMENTATION
     Dosage: DAILY DOSE: 1 TAB. SPORADICALLY
     Route: 048
  3. BIPERIDEN [Concomitant]
     Active Substance: BIPERIDEN
     Indication: SCHIZOPHRENIA
     Dosage: DAILY DOSE: 4 MG (2 MG AT MORNING, LUNCH)
     Route: 048
  4. FOLIC ACID. [Concomitant]
     Active Substance: FOLIC ACID
     Indication: SUPPLEMENTATION THERAPY
     Dosage: DAILY DOSE: 10MG (5MG AT MORNING, LUNCH)
     Route: 048
  5. HALOPERIDOL. [Concomitant]
     Active Substance: HALOPERIDOL
     Indication: SCHIZOPHRENIA
     Dosage: DAILYDOSE: 30MG (10MG AT MORNING, AFTERNOON, NIGHT)
     Route: 048
  6. BUCLINA [Concomitant]
     Indication: SUPPLEMENTATION THERAPY
     Dosage: DAILY DOSE: 3 TAB (1 TAB AT MORNING, AFTERNOON, NIGHT)

REACTIONS (2)
  - Product use issue [Unknown]
  - Hypoacusis [Not Recovered/Not Resolved]
